FAERS Safety Report 5508853-0 (Version None)
Quarter: 2007Q4

REPORT INFORMATION
  Report Type: 
  Country: None (occurrence: None)
  Receive Date: 20071107
  Receipt Date: 20071030
  Transmission Date: 20080405
  Serious: Yes (Other)
  Sender: FDA-Public Use
  Company Number: GB-AVENTIS-200720105GDDC

PATIENT
  Age: 27 Year
  Sex: Female

DRUGS (3)
  1. RIFINAH [Suspect]
     Indication: TUBERCULOSIS
     Route: 048
     Dates: start: 20040401
  2. PYRAZINAMIDE [Suspect]
     Indication: TUBERCULOSIS
     Route: 048
     Dates: start: 20040414, end: 20040616
  3. IMPLANON [Suspect]
     Indication: CONTRACEPTION
     Dates: start: 20040101, end: 20040801

REACTIONS (4)
  - ECTOPIC PREGNANCY [None]
  - MENSTRUATION IRREGULAR [None]
  - UNINTENDED PREGNANCY [None]
  - WEIGHT INCREASED [None]
